FAERS Safety Report 18098834 (Version 1)
Quarter: 2020Q3

REPORT INFORMATION
  Report Type: Report from Study
  Country: CA (occurrence: CA)
  Receive Date: 20200731
  Receipt Date: 20200731
  Transmission Date: 20201103
  Serious: Yes (Death)
  Sender: FDA-Public Use
  Company Number: CA-TAKEDA-2020TUS032909

PATIENT
  Age: 78 Year
  Sex: Male

DRUGS (3)
  1. BUDESONIDE. [Concomitant]
     Active Substance: BUDESONIDE
     Dosage: UNK
  2. VEDOLIZUMAB [Suspect]
     Active Substance: VEDOLIZUMAB
     Indication: CROHN^S DISEASE
     Dosage: 300 MILLIGRAM
     Route: 042
     Dates: start: 20190625
  3. ENTOCORT [Concomitant]
     Active Substance: BUDESONIDE
     Dosage: 15 MILLIGRAM, QD

REACTIONS (1)
  - Death [Fatal]

NARRATIVE: CASE EVENT DATE: 20200722
